FAERS Safety Report 23387471 (Version 2)
Quarter: 2024Q1

REPORT INFORMATION
  Report Type: Report from Study
  Country: US (occurrence: US)
  Receive Date: 20240110
  Receipt Date: 20240206
  Transmission Date: 20240410
  Serious: Yes (Hospitalization, Other)
  Sender: FDA-Public Use
  Company Number: US-PFIZER INC-PV202300172486

PATIENT
  Age: 80 Year
  Sex: Female

DRUGS (4)
  1. IBRANCE [Suspect]
     Active Substance: PALBOCICLIB
     Indication: Breast cancer female
     Dosage: TAKE 1 TABLET BY MOUTH ONCE DAILY FOR 21 DAYS ON THEN 7 DAYS OFF
     Route: 048
     Dates: start: 202306, end: 202306
  2. IBRANCE [Suspect]
     Active Substance: PALBOCICLIB
     Dosage: TAKE 1 TABLET BY MOUTH ONCE DAILY FOR 21 DAYS ON THEN 7 DAYS OFF
     Route: 048
     Dates: start: 202308, end: 2023
  3. IBRANCE [Suspect]
     Active Substance: PALBOCICLIB
     Dosage: (DAILY FOR 21 DAYS AND OFF 7 DAYS)
     Route: 048
     Dates: start: 20231122
  4. ANASTROZOLE [Concomitant]
     Active Substance: ANASTROZOLE
     Dosage: UNK

REACTIONS (11)
  - Localised infection [Recovered/Resolved]
  - COVID-19 [Recovered/Resolved]
  - Renal disorder [Unknown]
  - Glomerular filtration rate decreased [Not Recovered/Not Resolved]
  - Alopecia [Recovering/Resolving]
  - Nasopharyngitis [Recovered/Resolved]
  - Full blood count decreased [Recovering/Resolving]
  - Fatigue [Not Recovered/Not Resolved]
  - Sleep disorder [Unknown]
  - Chills [Unknown]
  - Oral pain [Unknown]

NARRATIVE: CASE EVENT DATE: 20230101
